FAERS Safety Report 17529510 (Version 2)
Quarter: 2020Q2

REPORT INFORMATION
  Report Type: Spontaneous
  Country: US (occurrence: US)
  Receive Date: 20200312
  Receipt Date: 20200424
  Transmission Date: 20200713
  Serious: No
  Sender: FDA-Public Use
  Company Number: US-ELI_LILLY_AND_COMPANY-US202003002664

PATIENT
  Age: 66 Year
  Sex: Female

DRUGS (6)
  1. VICTOZA [Suspect]
     Active Substance: LIRAGLUTIDE
     Indication: PRODUCT USED FOR UNKNOWN INDICATION
     Dosage: UNK UNK, UNKNOWN
     Route: 065
  2. HUMALOG MIX75/25 [Suspect]
     Active Substance: INSULIN LISPRO
     Dosage: 18 U, EACH EVENING
     Route: 065
     Dates: start: 2008
  3. HUMALOG MIX75/25 [Suspect]
     Active Substance: INSULIN LISPRO
     Indication: TYPE 2 DIABETES MELLITUS
     Dosage: 14 U, EACH MORNING
     Route: 065
     Dates: start: 2007
  4. HUMALOG MIX75/25 [Suspect]
     Active Substance: INSULIN LISPRO
     Dosage: 14 U, EACH MORNING
     Route: 065
  5. HUMALOG MIX75/25 [Suspect]
     Active Substance: INSULIN LISPRO
     Dosage: UNK UNK, UNKNOWN
     Route: 065
  6. HUMALOG MIX75/25 [Suspect]
     Active Substance: INSULIN LISPRO
     Dosage: 18 U, EACH EVENING
     Route: 065
     Dates: start: 2008

REACTIONS (11)
  - Glycosylated haemoglobin increased [Not Recovered/Not Resolved]
  - Helicobacter infection [Recovered/Resolved]
  - Somnolence [Unknown]
  - Blood glucose increased [Unknown]
  - Hyperphagia [Unknown]
  - Drug ineffective [Unknown]
  - Feeling abnormal [Unknown]
  - Fatigue [Unknown]
  - Incorrect product administration duration [Unknown]
  - Insulin resistance [Not Recovered/Not Resolved]
  - Blood glucose increased [Not Recovered/Not Resolved]

NARRATIVE: CASE EVENT DATE: 201905
